FAERS Safety Report 8388634 (Version 2)
Quarter: 2012Q4

REPORT INFORMATION
  Report Type: 
  Country: US (occurrence: US)
  Receive Date: 20120203
  Receipt Date: 20120928
  Transmission Date: 20130627
  Serious: Yes (Hospitalization)
  Sender: FDA-Public Use
  Company Number: US-US-EMD SERONO, INC.-7109565

PATIENT
  Sex: Female
  Weight: 66 kg

DRUGS (3)
  1. REBIF [Suspect]
     Indication: MULTIPLE SCLEROSIS
     Route: 058
     Dates: start: 20110321, end: 201206
  2. TYLENOL [Concomitant]
     Indication: PREMEDICATION
  3. ORTHO TRICYCLEN LO [Concomitant]
     Indication: CONTRACEPTION
     Dates: start: 200406

REACTIONS (6)
  - Optic neuritis [Recovered/Resolved]
  - Central nervous system lesion [Unknown]
  - Pain [Recovering/Resolving]
  - Chills [Recovering/Resolving]
  - Headache [Recovering/Resolving]
  - Injection site erythema [Recovered/Resolved]
